FAERS Safety Report 8811871 (Version 1)
Quarter: 2012Q4

REPORT INFORMATION
  Report Type: 
  Country: BR (occurrence: BR)
  Receive Date: 20120927
  Receipt Date: 20120927
  Transmission Date: 20130627
  Serious: Yes (Hospitalization)
  Sender: FDA-Public Use
  Company Number: BR-ASTRAZENECA-2012SE15910

PATIENT
  Age: 60 Year
  Sex: Male
  Weight: 85 kg

DRUGS (10)
  1. NEXIUM [Suspect]
     Indication: GASTRITIS PROPHYLAXIS
     Route: 048
     Dates: start: 2009
  2. BRILINTA [Suspect]
     Indication: CORONARY ARTERY OCCLUSION
     Route: 048
     Dates: start: 201112
  3. CARDILOL [Concomitant]
     Route: 048
  4. GENURIN [Concomitant]
     Route: 048
  5. ALDACTONE [Concomitant]
     Route: 048
  6. ASPIRIN [Concomitant]
     Route: 048
  7. COZAAR [Concomitant]
     Route: 048
  8. JANUVIA [Concomitant]
     Indication: DIABETES MELLITUS
     Route: 048
  9. METFORMIN [Concomitant]
     Indication: DIABETES MELLITUS
     Route: 048
  10. INSULIN [Concomitant]
     Indication: DIABETES MELLITUS
     Route: 058

REACTIONS (3)
  - Coronary artery occlusion [Recovered/Resolved]
  - Dizziness [Not Recovered/Not Resolved]
  - Off label use [Not Recovered/Not Resolved]
